FAERS Safety Report 6559163-4 (Version None)
Quarter: 2010Q1

REPORT INFORMATION
  Report Type: 
  Country: None (occurrence: None)
  Receive Date: 20100129
  Receipt Date: 20100120
  Transmission Date: 20100710
  Serious: Yes (Hospitalization)
  Sender: FDA-Public Use
  Company Number: JP-MERCK-1001USA03073

PATIENT
  Age: 83 Year
  Sex: Male

DRUGS (6)
  1. PEPCID [Suspect]
     Indication: PNEUMONIA ASPIRATION
     Route: 041
     Dates: start: 20091203, end: 20091216
  2. PRIMPERAN TAB [Suspect]
     Indication: PNEUMONIA ASPIRATION
     Route: 041
     Dates: start: 20091203, end: 20091208
  3. PRIMPERAN TAB [Suspect]
     Route: 041
     Dates: start: 20091209, end: 20091216
  4. UNASYN [Concomitant]
     Route: 065
     Dates: start: 20091204, end: 20091211
  5. GLYCEOL (FRUCTOSE (+) GLYCERIN (+) SODIUM CHLORIDE) [Concomitant]
     Route: 065
     Dates: start: 20091203, end: 20091211
  6. OZAPEN [Concomitant]
     Route: 065
     Dates: start: 20091203, end: 20091216

REACTIONS (2)
  - HYPOKALAEMIA [None]
  - HYPONATRAEMIA [None]
